FAERS Safety Report 10011135 (Version 1)
Quarter: 2014Q1

REPORT INFORMATION
  Report Type: Spontaneous
  Country: US (occurrence: US)
  Receive Date: 20140314
  Receipt Date: 20140314
  Transmission Date: 20141002
  Serious: Yes (Hospitalization)
  Sender: FDA-Public Use
  Company Number: US-BAYER-2014-037738

PATIENT
  Age: 35 Year
  Sex: Female
  Weight: 58.96 kg

DRUGS (5)
  1. YAZ [Suspect]
  2. YASMIN [Suspect]
  3. OMNICEF [Concomitant]
     Indication: SINUSITIS
  4. DILAUDID [Concomitant]
  5. TORADOL [Concomitant]

REACTIONS (1)
  - Pulmonary embolism [None]
